FAERS Safety Report 5528638-9 (Version None)
Quarter: 2007Q4

REPORT INFORMATION
  Report Type: 
  Country: None (occurrence: None)
  Receive Date: 20071129
  Receipt Date: 20071116
  Transmission Date: 20080405
  Serious: Yes (Hospitalization)
  Sender: FDA-Public Use
  Company Number: US-BRISTOL-MYERS SQUIBB COMPANY-13986062

PATIENT
  Sex: Female

DRUGS (1)
  1. REYATAZ [Suspect]
     Indication: HIV TEST POSITIVE

REACTIONS (1)
  - ANAPHYLACTIC REACTION [None]
